FAERS Safety Report 19469539 (Version 1)
Quarter: 2021Q2

REPORT INFORMATION
  Report Type: Other
  Country: CA (occurrence: CA)
  Receive Date: 20210629
  Receipt Date: 20210629
  Transmission Date: 20210717
  Serious: Yes (Other)
  Sender: FDA-Public Use
  Company Number: CA-ROCHE-2820323

PATIENT
  Sex: Female

DRUGS (4)
  1. TOVIAZ [Concomitant]
     Active Substance: FESOTERODINE FUMARATE
  2. LAMOTRIGINE. [Concomitant]
     Active Substance: LAMOTRIGINE
  3. OCREVUS [Suspect]
     Active Substance: OCRELIZUMAB
     Indication: RELAPSING-REMITTING MULTIPLE SCLEROSIS
     Dosage: 300 MG AT DAY 0 AND 14, THEN 600 MG EVERY 6 MONTH
     Route: 042
     Dates: start: 20201210
  4. VENLAFAXINE [Concomitant]
     Active Substance: VENLAFAXINE HYDROCHLORIDE

REACTIONS (2)
  - Depression [Recovered/Resolved]
  - Suicidal ideation [Recovered/Resolved]
